FAERS Safety Report 13233959 (Version 1)
Quarter: 2017Q1

REPORT INFORMATION
  Report Type: Spontaneous
  Country: US (occurrence: US)
  Receive Date: 20170215
  Receipt Date: 20170215
  Transmission Date: 20170428
  Serious: No
  Sender: FDA-Public Use
  Company Number: US-BAYER-2017-029182

PATIENT
  Age: 75 Year
  Sex: Female
  Weight: 79 kg

DRUGS (4)
  1. TYLENOL [Concomitant]
     Active Substance: ACETAMINOPHEN
  2. LOSARTAN. [Concomitant]
     Active Substance: LOSARTAN
  3. ALEVE [Suspect]
     Active Substance: NAPROXEN SODIUM
     Indication: SWELLING
     Dosage: 1 DF, QD
     Route: 048
     Dates: start: 20170110, end: 20170212
  4. ALEVE [Suspect]
     Active Substance: NAPROXEN SODIUM
     Indication: INFLAMMATION

REACTIONS (4)
  - Off label use [Unknown]
  - Product use issue [Unknown]
  - Blood pressure increased [Not Recovered/Not Resolved]
  - Headache [Recovered/Resolved]

NARRATIVE: CASE EVENT DATE: 20170110
